FAERS Safety Report 6338084-6 (Version None)
Quarter: 2009Q3

REPORT INFORMATION
  Report Type: 
  Country: None (occurrence: None)
  Receive Date: 20090902
  Receipt Date: 20090825
  Transmission Date: 20100115
  Serious: Yes (Other)
  Sender: FDA-Public Use
  Company Number: PHHY2009EC35995

PATIENT
  Age: 51 Year
  Sex: Female

DRUGS (3)
  1. ACLASTA [Suspect]
     Indication: OSTEOPOROSIS POSTMENOPAUSAL
     Dosage: 1 STAT
     Dates: start: 20090702
  2. ACLASTA [Suspect]
     Indication: OSTEOPENIA
  3. SOY ISOFLAVONES [Concomitant]

REACTIONS (7)
  - ANXIETY [None]
  - COUGH [None]
  - INSOMNIA [None]
  - MALAISE [None]
  - MYALGIA [None]
  - RESPIRATORY DISORDER [None]
  - SPUTUM RETENTION [None]
